FAERS Safety Report 17987635 (Version 1)
Quarter: 2020Q3

REPORT INFORMATION
  Report Type: Spontaneous
  Country: US (occurrence: US)
  Receive Date: 20200707
  Receipt Date: 20200707
  Transmission Date: 20201103
  Serious: Yes (Other)
  Sender: FDA-Public Use
  Company Number: US-LUPIN HEALTHCARE (UK) LIMITED-2020-03092

PATIENT
  Age: 7 Year
  Sex: Male
  Weight: 22 kg

DRUGS (1)
  1. CEPHALEXIN FOR ORAL SUSPENSION USP 250 MG/5 ML [Suspect]
     Active Substance: CEPHALEXIN
     Indication: INFECTION
     Dosage: 7.4 MILLILITER, TID (DOSE UNIT 250 MG/5 ML)
     Route: 048
     Dates: start: 20200618

REACTIONS (1)
  - Blood glucose increased [Not Recovered/Not Resolved]

NARRATIVE: CASE EVENT DATE: 20200618
